FAERS Safety Report 5869868-6 (Version None)
Quarter: 2008Q3

REPORT INFORMATION
  Report Type: 
  Country: None (occurrence: None)
  Receive Date: 20080902
  Receipt Date: 20080819
  Transmission Date: 20090109
  Serious: Yes (Other)
  Sender: FDA-Public Use
  Company Number: 08-001363

PATIENT
  Age: 17 Year
  Sex: Female
  Weight: 47.6 kg

DRUGS (2)
  1. LOESTRIN 24 FE [Suspect]
     Indication: CONTRACEPTION
     Dosage: 20/1000 UG, QD, ORAL
     Route: 048
     Dates: start: 20080601, end: 20080601
  2. LOESTRIN 24 FE [Suspect]
     Indication: CONTRACEPTION
     Dosage: 20/1000 UG, QD, ORAL
     Route: 048
     Dates: start: 20080801

REACTIONS (8)
  - ABORTION INDUCED [None]
  - DRUG ADMINISTRATION ERROR [None]
  - DRUG EXPOSURE DURING PREGNANCY [None]
  - DRUG INEFFECTIVE [None]
  - FLANK PAIN [None]
  - NIPPLE DISORDER [None]
  - OVARIAN CYST RUPTURED [None]
  - PREGNANCY ON ORAL CONTRACEPTIVE [None]
